FAERS Safety Report 7593897-8 (Version None)
Quarter: 2011Q3

REPORT INFORMATION
  Report Type: 
  Country: None (occurrence: None)
  Receive Date: 20110706
  Receipt Date: 20110628
  Transmission Date: 20111222
  Serious: Yes (Other)
  Sender: FDA-Public Use
  Company Number: PHHY2011ES57170

PATIENT
  Age: 8 Year
  Sex: Male

DRUGS (1)
  1. METHYLPHENIDATE [Suspect]
     Dosage: 18 MG, QD

REACTIONS (6)
  - IRRITABILITY [None]
  - TIC [None]
  - HALLUCINATION, AUDITORY [None]
  - ANXIETY [None]
  - AFFECT LABILITY [None]
  - HALLUCINATION, VISUAL [None]
